FAERS Safety Report 10449960 (Version 2)
Quarter: 2014Q3

REPORT INFORMATION
  Report Type: Spontaneous
  Country: US (occurrence: US)
  Receive Date: 20140912
  Receipt Date: 20140912
  Transmission Date: 20150326
  Serious: No
  Sender: FDA-Public Use
  Company Number: US-INCYTE CORPORATION-2014IN001541

PATIENT
  Age: 81 Year
  Sex: Female

DRUGS (4)
  1. JAKAFI [Suspect]
     Active Substance: RUXOLITINIB
     Indication: MYELOFIBROSIS
     Dosage: 10 MG, BID
     Route: 048
     Dates: start: 20140406
  2. JAKAFI [Suspect]
     Active Substance: RUXOLITINIB
     Dosage: 10 MG, BID
     Route: 048
     Dates: start: 20140513
  3. JAKAFI [Suspect]
     Active Substance: RUXOLITINIB
     Dosage: 5 MG, BID
     Route: 048
     Dates: start: 20140521, end: 20140610
  4. JAKAFI [Suspect]
     Active Substance: RUXOLITINIB
     Dosage: 5 MG, BID
     Route: 048

REACTIONS (14)
  - Gastrointestinal disorder [Unknown]
  - Furuncle [Unknown]
  - Mass [Unknown]
  - Contusion [Unknown]
  - Platelet count decreased [Unknown]
  - Blood count abnormal [Unknown]
  - Petechiae [Unknown]
  - Pain [Unknown]
  - Haematoma [Unknown]
  - Splenomegaly [Unknown]
  - Mobility decreased [Unknown]
  - Fatigue [Unknown]
  - White blood cell count increased [Unknown]
  - Rib fracture [Unknown]

NARRATIVE: CASE EVENT DATE: 20140519
